FAERS Safety Report 26175281 (Version 1)
Quarter: 2025Q4

REPORT INFORMATION
  Report Type: Spontaneous
  Country: US (occurrence: None)
  Receive Date: 20251218
  Receipt Date: 20251218
  Transmission Date: 20260117
  Serious: Yes (Other)
  Sender: FDA-CTU
  Company Number: None

PATIENT
  Age: 55 Year
  Sex: Male
  Weight: 108.5 kg

DRUGS (1)
  1. MIRCERA [Suspect]
     Active Substance: METHOXY POLYETHYLENE GLYCOL-EPOETIN BETA
     Indication: Anaemia
     Dosage: OTHER FREQUENCY : BI-MONTHLY;
     Route: 042
     Dates: start: 20251124, end: 20251208

REACTIONS (4)
  - Seizure [None]
  - Blood pressure increased [None]
  - Heart rate increased [None]
  - Dialysis [None]

NARRATIVE: CASE EVENT DATE: 20251208
